FAERS Safety Report 18509723 (Version 1)
Quarter: 2020Q4

REPORT INFORMATION
  Report Type: Spontaneous
  Country: CN (occurrence: CN)
  Receive Date: 20201117
  Receipt Date: 20201117
  Transmission Date: 20210114
  Serious: Yes (Hospitalization, Other)
  Sender: FDA-Public Use
  Company Number: CN-ALKEM LABORATORIES LIMITED-CN-ALKEM-2020-07983

PATIENT
  Age: 42 Year
  Sex: Male

DRUGS (1)
  1. COLCHICINE. [Suspect]
     Active Substance: COLCHICINE
     Indication: SUICIDE ATTEMPT
     Dosage: 50 MILLIGRAM
     Route: 065

REACTIONS (5)
  - Suicide attempt [Unknown]
  - Myelosuppression [Recovered/Resolved]
  - Overdose [Unknown]
  - Respiratory failure [Recovered/Resolved]
  - Gastrointestinal disorder [Recovered/Resolved]
